FAERS Safety Report 7530430-0 (Version None)
Quarter: 2011Q2

REPORT INFORMATION
  Report Type: 
  Country: None (occurrence: None)
  Receive Date: 20110607
  Receipt Date: 20090710
  Transmission Date: 20111010
  Serious: Yes (Hospitalization)
  Sender: FDA-Public Use
  Company Number: GB-AMGEN-UK246040

PATIENT
  Age: 60 Year
  Sex: Male

DRUGS (2)
  1. DENOSUMAB [Suspect]
     Indication: METASTASES TO BONE
     Dosage: UNK UNK, Q4WK
     Route: 058
     Dates: start: 20070620
  2. LANSOPRAZOLE [Concomitant]
     Dosage: UNK UNK, UNK
     Route: 048
     Dates: start: 20070808, end: 20080108

REACTIONS (1)
  - TOOTH ABSCESS [None]
